FAERS Safety Report 22941969 (Version 2)
Quarter: 2024Q3

REPORT INFORMATION
  Report Type: Report from Study
  Country: AR (occurrence: AR)
  Receive Date: 20230914
  Receipt Date: 20240701
  Transmission Date: 20241017
  Serious: Yes (Other)
  Sender: NOVARTIS
  Company Number: AR-002147023-NVSC2023AR189835

PATIENT
  Sex: Female

DRUGS (2)
  1. COSENTYX [Suspect]
     Active Substance: SECUKINUMAB
     Indication: Psoriasis
     Dosage: 300 MG, QMO
     Route: 058
     Dates: start: 20170719
  2. COSENTYX [Suspect]
     Active Substance: SECUKINUMAB
     Indication: Psoriatic arthropathy
     Dosage: 300 MG, QMO
     Route: 065
     Dates: start: 2017

REACTIONS (9)
  - Psoriatic arthropathy [Unknown]
  - Parkinson^s disease [Unknown]
  - Psoriasis [Unknown]
  - Condition aggravated [Unknown]
  - Product supply issue [Unknown]
  - Dry skin [Unknown]
  - Influenza like illness [Recovered/Resolved]
  - Dysphagia [Unknown]
  - Tremor [Unknown]
